FAERS Safety Report 8426920-9 (Version None)
Quarter: 2012Q2

REPORT INFORMATION
  Report Type: 
  Country: None (occurrence: None)
  Receive Date: 20120531
  Receipt Date: 20120522
  Transmission Date: 20120825
  Serious: Yes (Other)
  Sender: FDA-Public Use
  Company Number: 2012SP027576

PATIENT
  Sex: Female

DRUGS (2)
  1. PEG-INTRON [Suspect]
     Indication: HEPATITIS C
     Dates: start: 20120518
  2. RIBAVIRIN [Suspect]
     Indication: HEPATITIS C
     Dates: start: 20120518

REACTIONS (6)
  - MALAISE [None]
  - PYREXIA [None]
  - BLOOD POTASSIUM DECREASED [None]
  - WHEEZING [None]
  - REGURGITATION [None]
  - NAUSEA [None]
